FAERS Safety Report 10867568 (Version 1)
Quarter: 2015Q1

REPORT INFORMATION
  Report Type: Spontaneous
  Country: GB (occurrence: GB)
  Receive Date: 20150225
  Receipt Date: 20150225
  Transmission Date: 20150721
  Serious: Yes (Other)
  Sender: FDA-Public Use
  Company Number: GB-TEVA-542631ACC

PATIENT
  Age: 73 Year
  Sex: Female
  Weight: 72 kg

DRUGS (9)
  1. FLUCONAZOLE. [Suspect]
     Active Substance: FLUCONAZOLE
     Indication: CANDIDA INFECTION
     Dosage: 50 MILLIGRAM DAILY; COURSE: FOR 7 DAYS; DAILY DOSE: 50 MILLIGRAM
     Route: 048
     Dates: start: 20150105, end: 20150106
  2. OMEPRAZOLE. [Concomitant]
     Active Substance: OMEPRAZOLE
     Indication: DYSPEPSIA
     Dates: start: 20120918
  3. AMLODIPINE [Concomitant]
     Active Substance: AMLODIPINE BESYLATE
     Indication: HYPERTENSION
     Dates: start: 20100526
  4. FLECAINIDE [Interacting]
     Active Substance: FLECAINIDE
     Indication: ATRIAL FIBRILLATION
     Dosage: 100 MILLIGRAM DAILY; LONG TERM; DAILY DOSE: 100MILLIGRAM
     Dates: start: 20080814
  5. PARACETAMOL [Concomitant]
     Active Substance: ACETAMINOPHEN
     Indication: ANALGESIC THERAPY
     Dates: start: 20050923
  6. ASPIRIN CRYSTALLINE [Concomitant]
     Dates: start: 20090227
  7. IPRATROPIUM BROMIDE. [Concomitant]
     Active Substance: IPRATROPIUM BROMIDE
     Dates: start: 20030908
  8. SERETIDE [Concomitant]
     Active Substance: FLUTICASONE FUROATE\SALMETEROL XINAFOATE
     Dates: start: 20050923
  9. BETAHISTINE [Concomitant]
     Active Substance: BETAHISTINE
     Indication: DIZZINESS
     Dates: start: 20070402

REACTIONS (5)
  - Dizziness [Recovered/Resolved]
  - Malaise [Recovered/Resolved]
  - Arrhythmia [Recovered/Resolved]
  - Palpitations [Recovered/Resolved]
  - Drug interaction [Unknown]

NARRATIVE: CASE EVENT DATE: 20150105
